FAERS Safety Report 24791183 (Version 1)
Quarter: 2024Q4

REPORT INFORMATION
  Report Type: Spontaneous
  Country: US (occurrence: US)
  Receive Date: 20241230
  Receipt Date: 20241230
  Transmission Date: 20250115
  Serious: No
  Sender: AMGEN
  Company Number: US-AMGEN-USASP2024251644

PATIENT
  Age: 50 Year
  Sex: Female

DRUGS (3)
  1. TEPEZZA [Suspect]
     Active Substance: TEPROTUMUMAB-TRBW
     Indication: Toxic goitre
     Dosage: 520 MILLIGRAM, Q3WK WEEK 0: 520MG PIV X1 DOSE
     Route: 040
     Dates: start: 20240710
  2. TEPEZZA [Suspect]
     Active Substance: TEPROTUMUMAB-TRBW
     Dosage: 1000 MILLIGRAM, Q3WK SIXTH INFUSION
     Route: 040
     Dates: start: 20241022
  3. TEPEZZA [Suspect]
     Active Substance: TEPROTUMUMAB-TRBW
     Dosage: 1000 MILLIGRAM, Q3WK
     Route: 040
     Dates: start: 2024, end: 20241111

REACTIONS (7)
  - Skin discolouration [Recovering/Resolving]
  - Myalgia [Recovering/Resolving]
  - Peripheral swelling [Recovering/Resolving]
  - Pruritus [Recovering/Resolving]
  - Urticaria [Recovering/Resolving]
  - Rash [Recovering/Resolving]
  - Muscle spasms [Recovering/Resolving]

NARRATIVE: CASE EVENT DATE: 20240101
